FAERS Safety Report 14274879 (Version 1)
Quarter: 2017Q4

REPORT INFORMATION
  Report Type: Spontaneous
  Country: US (occurrence: US)
  Receive Date: 20171212
  Receipt Date: 20171212
  Transmission Date: 20180321
  Serious: No
  Sender: FDA-Public Use
  Company Number: US-BION-005874

PATIENT
  Age: 42 Year
  Sex: Female
  Weight: 68.04 kg

DRUGS (1)
  1. ERGOCALCIFEROL. [Suspect]
     Active Substance: ERGOCALCIFEROL
     Indication: PRODUCT USED FOR UNKNOWN INDICATION
     Dosage: PRESCRIBED A FEW MONTH AGO

REACTIONS (1)
  - Headache [Recovered/Resolved]
